FAERS Safety Report 6410111-7 (Version None)
Quarter: 2009Q4

REPORT INFORMATION
  Report Type: 
  Country: None (occurrence: None)
  Receive Date: 20091022
  Receipt Date: 20091013
  Transmission Date: 20100525
  Serious: Yes (Hospitalization)
  Sender: FDA-Public Use
  Company Number: AU-NOVOPROD-292809

PATIENT
  Age: 12 Week
  Sex: Male
  Weight: 5.31 kg

DRUGS (10)
  1. NOVOSEVEN [Suspect]
     Indication: HAEMORRHAGE
     Dosage: .5 MG, UNK
     Dates: start: 20080421, end: 20080421
  2. HEPARIN [Concomitant]
     Dates: start: 20080421
  3. ALBUMEX 5 [Concomitant]
  4. TRASYLOL [Concomitant]
  5. RED BLOOD CELLS [Concomitant]
     Dosage: 262 ML
  6. RED BLOOD CELLS [Concomitant]
     Dosage: 80ML
  7. FRESH FROZEN PLASMA [Concomitant]
     Dosage: 80 ML
  8. PLATELETS [Concomitant]
     Dosage: 150 ML
  9. PLATELETS [Concomitant]
     Dosage: 50 ML
  10. CRYOPRECIPITATES [Concomitant]
     Dosage: 100 ML

REACTIONS (1)
  - ALKALOSIS [None]
